FAERS Safety Report 25383207 (Version 1)
Quarter: 2025Q2

REPORT INFORMATION
  Report Type: Spontaneous
  Country: US (occurrence: US)
  Receive Date: 20250602
  Receipt Date: 20250602
  Transmission Date: 20250716
  Serious: Yes (Other)
  Sender: AMGEN
  Company Number: US-AMGEN-USASP2025104028

PATIENT
  Age: 70 Year
  Sex: Female

DRUGS (4)
  1. PREDNISONE [Suspect]
     Active Substance: PREDNISONE
     Indication: Peripheral T-cell lymphoma unspecified
     Route: 065
  2. NEULASTA [Suspect]
     Active Substance: PEGFILGRASTIM
     Indication: Prophylaxis
     Route: 065
  3. HYDROXYCHLOROQUINE [Concomitant]
     Active Substance: HYDROXYCHLOROQUINE
  4. CLOBETASOL [Concomitant]
     Active Substance: CLOBETASOL

REACTIONS (11)
  - Pseudomonal bacteraemia [Unknown]
  - Peripheral T-cell lymphoma unspecified [Unknown]
  - Febrile neutropenia [Unknown]
  - Septic shock [Unknown]
  - Ecthyma [Unknown]
  - Therapeutic product effect incomplete [Unknown]
  - Blood uric acid increased [Unknown]
  - Eyelids pruritus [Unknown]
  - Oedema [Unknown]
  - Catheter site infection [Unknown]
  - Anaemia [Unknown]
